FAERS Safety Report 5007491-6 (Version None)
Quarter: 2006Q2

REPORT INFORMATION
  Report Type: 
  Country: None (occurrence: None)
  Receive Date: 20060517
  Receipt Date: 20060502
  Transmission Date: 20061013
  Serious: Yes (Other)
  Sender: FDA-Public Use
  Company Number: 2006S1000233

PATIENT
  Age: 56 Year
  Sex: Male
  Weight: 80.7403 kg

DRUGS (7)
  1. FENTANYL TRANSDERMAL SYSTEM [Suspect]
     Indication: BACK PAIN
     Dosage: 50 UG/HR; Q3D; TRANS
     Route: 062
     Dates: start: 20050801, end: 20051227
  2. FENTANYL TRANSDERMAL SYSTEM [Suspect]
     Indication: NECK PAIN
     Dosage: 50 UG/HR; Q3D; TRANS
     Route: 062
     Dates: start: 20050801, end: 20051227
  3. FENTANYL TRANSDERMAL SYSTEM [Suspect]
     Indication: SPINAL FUSION SURGERY
     Dosage: 50 UG/HR; Q3D; TRANS
     Route: 062
     Dates: start: 20050801, end: 20051227
  4. PARACETAMOL / OXYCODONE HYDROCHLORIDE [Concomitant]
  5. OXYBUTYNIN HYDROCHLORIDE [Concomitant]
  6. ALFUZOSIN HYDROCHLORIDE [Concomitant]
  7. DULOXETINE [Concomitant]

REACTIONS (7)
  - APPLICATION SITE ERYTHEMA [None]
  - APPLICATION SITE REACTION [None]
  - BLISTER [None]
  - BURNS THIRD DEGREE [None]
  - DRUG EFFECT DECREASED [None]
  - DRUG WITHDRAWAL SYNDROME [None]
  - PHARMACEUTICAL PRODUCT COMPLAINT [None]
